FAERS Safety Report 5581551-3 (Version None)
Quarter: 2008Q1

REPORT INFORMATION
  Report Type: 
  Country: None (occurrence: None)
  Receive Date: 20080102
  Receipt Date: 20080102
  Transmission Date: 20080703
  Serious: Yes (Other)
  Sender: FDA-Public Use
  Company Number: None

PATIENT
  Sex: Male
  Weight: 99.7913 kg

DRUGS (1)
  1. AVELOX [Suspect]
     Indication: SINUSITIS
     Dosage: 400MG 1X DY FOR 15 DYS PO
     Route: 048
     Dates: start: 20071226, end: 20071230

REACTIONS (31)
  - ANOREXIA [None]
  - ANXIETY [None]
  - ARTHRALGIA [None]
  - BACK PAIN [None]
  - BALANCE DISORDER [None]
  - CHILLS [None]
  - DISTURBANCE IN ATTENTION [None]
  - DRY MOUTH [None]
  - DRY SKIN [None]
  - FATIGUE [None]
  - FEELING ABNORMAL [None]
  - HEADACHE [None]
  - HYPERHIDROSIS [None]
  - HYPERSENSITIVITY [None]
  - INSOMNIA [None]
  - MALAISE [None]
  - NASAL CONGESTION [None]
  - NAUSEA [None]
  - NECK PAIN [None]
  - NERVOUSNESS [None]
  - PAIN [None]
  - PAIN IN EXTREMITY [None]
  - PAIN IN JAW [None]
  - PARAESTHESIA [None]
  - PAROSMIA [None]
  - SENSORY DISTURBANCE [None]
  - SINUS CONGESTION [None]
  - SOMNOLENCE [None]
  - SPEECH DISORDER [None]
  - TREMOR [None]
  - VISION BLURRED [None]
